FAERS Safety Report 5218066-8 (Version None)
Quarter: 2007Q1

REPORT INFORMATION
  Report Type: 
  Country: None (occurrence: None)
  Receive Date: 20061130
  Receipt Date: 20060901
  Transmission Date: 20070707
  Serious: Yes (Other)
  Sender: FDA-Public Use
  Company Number: US200609001145

PATIENT
  Sex: Male
  Weight: 89.8 kg

DRUGS (3)
  1. ZYPREXA [Suspect]
     Dosage: MG
     Dates: start: 19980101, end: 19980101
  2. ZYPREXA [Suspect]
     Dosage: MG
     Dates: start: 20030101, end: 20030101
  3. RISPERIDONE [Concomitant]

REACTIONS (4)
  - DIABETES MELLITUS [None]
  - DIABETIC COMA [None]
  - DIABETIC KETOACIDOSIS [None]
  - VISION BLURRED [None]
